FAERS Safety Report 10977110 (Version 2)
Quarter: 2015Q2

REPORT INFORMATION
  Report Type: Spontaneous
  Country: US (occurrence: US)
  Receive Date: 20150402
  Receipt Date: 20150410
  Transmission Date: 20150821
  Serious: No
  Sender: FDA-Public Use
  Company Number: US-009507513-1504USA000797

PATIENT
  Age: 24 Year
  Sex: Female
  Weight: 52.61 kg

DRUGS (1)
  1. NEXPLANON [Suspect]
     Active Substance: ETONOGESTREL
     Indication: CONTRACEPTION
     Dosage: ONE ROD ONCE
     Route: 059
     Dates: start: 20150325, end: 20150329

REACTIONS (2)
  - Implant site cellulitis [Recovering/Resolving]
  - Implant site erythema [Recovering/Resolving]

NARRATIVE: CASE EVENT DATE: 20150327
